FAERS Safety Report 10593468 (Version 1)
Quarter: 2014Q4

REPORT INFORMATION
  Report Type: Spontaneous
  Country: US (occurrence: None)
  Receive Date: 20141118
  Receipt Date: 20141118
  Transmission Date: 20150529
  Serious: No
  Sender: FDA-Public Use
  Company Number: None

PATIENT
  Age: 66 Year
  Sex: Female

DRUGS (8)
  1. ZETIA [Suspect]
     Active Substance: EZETIMIBE
     Indication: ISCHAEMIC HEART DISEASE PROPHYLAXIS
     Dosage: 30 TABLETS
     Dates: start: 20140530, end: 20140605
  2. AMLODIPINE [Concomitant]
     Active Substance: AMLODIPINE BESYLATE
  3. ALPAZOLAM [Concomitant]
     Active Substance: ALPRAZOLAM
  4. RANITIDINE [Concomitant]
     Active Substance: RANITIDINE\RANITIDINE HYDROCHLORIDE
  5. CLOPIDOGREL [Concomitant]
     Active Substance: CLOPIDOGREL BISULFATE
  6. ZETIA [Suspect]
     Active Substance: EZETIMIBE
     Indication: BLOOD CHOLESTEROL INCREASED
     Dosage: 30 TABLETS
     Dates: start: 20140530, end: 20140605
  7. TEMAZEPAM. [Concomitant]
     Active Substance: TEMAZEPAM
  8. DULOXETINE [Concomitant]
     Active Substance: DULOXETINE

REACTIONS (1)
  - Weight increased [None]

NARRATIVE: CASE EVENT DATE: 20140530
